FAERS Safety Report 9793025 (Version 1)
Quarter: 2014Q1

REPORT INFORMATION
  Report Type: Spontaneous
  Country: FR (occurrence: FR)
  Receive Date: 20140102
  Receipt Date: 20140102
  Transmission Date: 20141002
  Serious: Yes (Hospitalization)
  Sender: FDA-Public Use
  Company Number: FR-PFIZER INC-2013371206

PATIENT
  Age: 85 Year
  Sex: Male

DRUGS (13)
  1. INSPRA [Suspect]
     Indication: HYPERTENSION
     Dosage: UNK
     Route: 048
     Dates: end: 20130812
  2. DUROGESIC [Suspect]
     Indication: SPINAL PAIN
     Dosage: 1 DF IN 72H
     Route: 062
     Dates: start: 20130810, end: 20130812
  3. ATACAND [Suspect]
     Indication: HYPERTENSION
     Dosage: UNK
     Route: 048
     Dates: end: 20130812
  4. BIPROFENID [Suspect]
     Indication: SPINAL PAIN
     Dosage: 100 MG, 2X/DAY
     Route: 048
     Dates: start: 20130810, end: 20130812
  5. ORAMORPH [Suspect]
     Indication: SPINAL PAIN
     Dosage: UNK
     Route: 048
     Dates: start: 20130810, end: 20130812
  6. LASILIX - SLOW RELEASE [Concomitant]
     Dosage: 60 MG, 1X/DAY
     Route: 048
  7. ORMANDYL [Concomitant]
     Route: 048
  8. SINGULAIR [Concomitant]
     Route: 055
  9. SYMBICORT TURBUHALER [Concomitant]
     Route: 055
  10. TAMSULOSIN [Concomitant]
     Dosage: 0.4 MG, 1X/DAY
     Route: 048
  11. DISCOTRINE [Concomitant]
     Dosage: 1 DF, DAILY
     Route: 062
  12. KARDEGIC [Concomitant]
     Dosage: 75 MG, 1X/DAY
     Route: 048
  13. CARDENSIEL [Concomitant]
     Dosage: 2.5 MG, 1X/DAY
     Route: 048

REACTIONS (2)
  - Renal failure acute [Recovered/Resolved]
  - Syncope [Recovered/Resolved]
